FAERS Safety Report 5890591-6 (Version None)
Quarter: 2008Q3

REPORT INFORMATION
  Report Type: 
  Country: None (occurrence: None)
  Receive Date: 20080818
  Receipt Date: 20070821
  Transmission Date: 20090109
  Serious: Yes (Other)
  Sender: FDA-Public Use
  Company Number: 20073734

PATIENT
  Age: 35 Year
  Sex: Male

DRUGS (4)
  1. LIORESAL [Suspect]
     Indication: MUSCLE SPASTICITY
     Dosage: MCG, DAILY, INTRATHECAL
     Route: 037
  2. PRIALT 0.5 MCG/DAY [Concomitant]
  3. MORPHINE [Concomitant]
  4. BUPIVACAINE [Concomitant]

REACTIONS (1)
  - POLLAKIURIA [None]
